FAERS Safety Report 6088442-2 (Version None)
Quarter: 2009Q1

REPORT INFORMATION
  Report Type: 
  Country: None (occurrence: None)
  Receive Date: 20090224
  Receipt Date: 20090212
  Transmission Date: 20090719
  Serious: Yes (Other)
  Sender: FDA-Public Use
  Company Number: JP-PFIZER INC-2009169756

PATIENT

DRUGS (5)
  1. NORVASC [Suspect]
     Dosage: 2.5 MG, 1X/DAY
  2. PLAVIX [Concomitant]
     Dosage: UNK
     Route: 048
  3. HALCION [Concomitant]
     Route: 048
  4. MUCODYNE [Concomitant]
     Route: 048
  5. ACDEAM [Concomitant]
     Route: 048

REACTIONS (1)
  - HYPOACUSIS [None]
